FAERS Safety Report 10871842 (Version 1)
Quarter: 2015Q1

REPORT INFORMATION
  Report Type: Spontaneous
  Country: US (occurrence: None)
  Receive Date: 20150223
  Receipt Date: 20150223
  Transmission Date: 20150721
  Serious: No
  Sender: FDA-Public Use
  Company Number: None

PATIENT
  Age: 6 Year
  Sex: Male
  Weight: 24.04 kg

DRUGS (3)
  1. GUANFACINE ER 1 MG ACTAVIS [Suspect]
     Active Substance: GUANFACINE
     Indication: ATTENTION DEFICIT/HYPERACTIVITY DISORDER
     Route: 048
  2. INTUNIV [Concomitant]
     Active Substance: GUANFACINE HYDROCHLORIDE
  3. DAILY MULTIVITAMIN [Concomitant]
     Active Substance: VITAMINS

REACTIONS (8)
  - Product substitution issue [None]
  - Disturbance in attention [None]
  - Emotional disorder [None]
  - Mood altered [None]
  - Abnormal behaviour [None]
  - Psychiatric symptom [None]
  - Reaction to colouring [None]
  - Drug ineffective [None]

NARRATIVE: CASE EVENT DATE: 20150121
